FAERS Safety Report 15652248 (Version 2)
Quarter: 2018Q4

REPORT INFORMATION
  Report Type: Spontaneous
  Country: CZ (occurrence: CZ)
  Receive Date: 20181123
  Receipt Date: 20181126
  Transmission Date: 20190205
  Serious: Yes (Other)
  Sender: FDA-Public Use
  Company Number: CZ-PFM-2018-13660

PATIENT

DRUGS (4)
  1. PACLITAXEL. [Suspect]
     Active Substance: PACLITAXEL
     Indication: LUNG ADENOCARCINOMA
     Dosage: 200 MG/M2
     Route: 042
     Dates: start: 20150916
  2. VINORELBINE TARTRATE. [Suspect]
     Active Substance: VINORELBINE TARTRATE
     Indication: LUNG ADENOCARCINOMA
     Dosage: 30 MG/M2, ON DAY 1 AND DAY 8
     Route: 042
  3. CARBOPLATIN. [Suspect]
     Active Substance: CARBOPLATIN
     Indication: LUNG ADENOCARCINOMA
     Dosage: AUC 6 EVERY 21 DAYS
     Route: 042
     Dates: start: 20150916
  4. BEVACIZUMAB. [Suspect]
     Active Substance: BEVACIZUMAB
     Indication: LUNG ADENOCARCINOMA
     Dosage: 7.5 MG/KG, CYCLICAL(1/21).
     Route: 042
     Dates: start: 20150916, end: 20171031

REACTIONS (8)
  - Dyspepsia [Unknown]
  - Neuropathy peripheral [Unknown]
  - Neutropenia [Unknown]
  - Fatigue [Unknown]
  - Radiation pneumonitis [Unknown]
  - Pulmonary fibrosis [Unknown]
  - Arthralgia [Unknown]
  - Abdominal pain upper [Unknown]

NARRATIVE: CASE EVENT DATE: 20160921
